FAERS Safety Report 8777068 (Version 3)
Quarter: 2013Q2

REPORT INFORMATION
  Report Type: Spontaneous
  Country: US (occurrence: US)
  Receive Date: 20120911
  Receipt Date: 20130513
  Transmission Date: 20140414
  Serious: Yes (Hospitalization, Other)
  Sender: FDA-Public Use
  Company Number: US-BRISTOL-MYERS SQUIBB COMPANY-16923161

PATIENT
  Age: 53 Year
  Sex: Male

DRUGS (2)
  1. COUMADIN [Suspect]
  2. LETAIRIS [Suspect]
     Indication: PULMONARY HYPERTENSION
     Dosage: TABS
     Route: 048
     Dates: start: 20120119

REACTIONS (8)
  - Hemiparesis [Recovered/Resolved]
  - International normalised ratio abnormal [Recovered/Resolved]
  - Ammonia increased [Recovered/Resolved]
  - Lethargy [Recovered/Resolved]
  - Anaemia [Recovered/Resolved]
  - Dyspnoea [Recovered/Resolved]
  - Atrial fibrillation [Recovered/Resolved]
  - Bronchoscopy [Unknown]
